FAERS Safety Report 13513586 (Version 1)
Quarter: 2017Q2

REPORT INFORMATION
  Report Type: Spontaneous
  Country: IT (occurrence: IT)
  Receive Date: 20170504
  Receipt Date: 20170504
  Transmission Date: 20170830
  Serious: Yes (Other)
  Sender: FDA-Public Use
  Company Number: IT-AUROBINDO-AUR-APL-2017-32980

PATIENT
  Age: 47 Year
  Sex: Female

DRUGS (3)
  1. PARACODINA                         /00063002/ [Concomitant]
     Active Substance: ASPIRIN\CAFFEINE\DIHYDROCODEINE BITARTRATE
     Indication: COUGH
     Dosage: 15 GTT, UNK
     Route: 048
     Dates: start: 20160608, end: 20160616
  2. LISINOPRIL TABLET [Suspect]
     Active Substance: LISINOPRIL
     Indication: HYPERTENSION
     Dosage: 5 MG, DAILY
     Route: 048
     Dates: start: 20160101, end: 20160617
  3. LANSOPRAZOLE. [Concomitant]
     Active Substance: LANSOPRAZOLE
     Indication: PRODUCT USED FOR UNKNOWN INDICATION
     Dosage: UNK
     Route: 048
     Dates: start: 20160101, end: 20160617

REACTIONS (2)
  - Apnoea [Not Recovered/Not Resolved]
  - Cough [Not Recovered/Not Resolved]

NARRATIVE: CASE EVENT DATE: 20160608
